APPROVED DRUG PRODUCT: DOCETAXEL
Active Ingredient: DOCETAXEL
Strength: 160MG/8ML (20MG/ML)
Dosage Form/Route: INJECTABLE;INJECTION
Application: N022234 | Product #007
Applicant: HOSPIRA INC
Approved: Jan 24, 2017 | RLD: Yes | RS: No | Type: RX